FAERS Safety Report 10497270 (Version 2)
Quarter: 2014Q4

REPORT INFORMATION
  Report Type: Spontaneous
  Country: NL (occurrence: NL)
  Receive Date: 20141006
  Receipt Date: 20141010
  Transmission Date: 20150528
  Serious: Yes (Death, Hospitalization, Other)
  Sender: FDA-Public Use
  Company Number: NL-SA-2014SA134002

PATIENT
  Age: 3 Year
  Sex: Male

DRUGS (6)
  1. ZITHROMAX [Concomitant]
     Active Substance: AZITHROMYCIN DIHYDRATE
     Indication: PROPHYLAXIS
     Route: 048
     Dates: end: 20140921
  2. FUROSEMIDE. [Concomitant]
     Active Substance: FUROSEMIDE
     Indication: FLUID RETENTION
     Dosage: 2 DD 15 MG
     Dates: end: 20140921
  3. GLYCOPYRRONIUM [Concomitant]
     Active Substance: GLYCOPYRRONIUM
     Indication: DYSPHAGIA
     Dosage: 2DD 0.3MG
     Dates: end: 20140921
  4. SALBUTAMOL [Concomitant]
     Active Substance: ALBUTEROL
     Indication: HYPOVENTILATION
     Dosage: 2.5 MG RESPIRATORY INHALATION
     Route: 055
     Dates: end: 20140921
  5. MYOZYME [Suspect]
     Active Substance: ALGLUCOSIDASE ALFA
     Indication: GLYCOGEN STORAGE DISEASE TYPE II
     Route: 042
     Dates: start: 20111114, end: 20140917
  6. QVAR [Concomitant]
     Active Substance: BECLOMETHASONE DIPROPIONATE
     Indication: HYPOVENTILATION
     Dosage: 2DD, 200MCG, RESPIRTORY INHALATION
     Route: 055
     Dates: end: 20140921

REACTIONS (6)
  - Respiratory arrest [Unknown]
  - Bradycardia [Unknown]
  - Tachycardia [Unknown]
  - Tachypnoea [Unknown]
  - Respiratory failure [Fatal]
  - Respiratory tract infection [Unknown]

NARRATIVE: CASE EVENT DATE: 20140921
